FAERS Safety Report 9328711 (Version 2)
Quarter: 2019Q1

REPORT INFORMATION
  Report Type: Spontaneous
  Country: US (occurrence: US)
  Receive Date: 20130604
  Receipt Date: 20190121
  Transmission Date: 20190418
  Serious: Yes (Other)
  Sender: FDA-Public Use
  Company Number: US-SANOFI-AVENTIS-2012SA064175

PATIENT
  Age: 62 Year
  Sex: Male

DRUGS (4)
  1. LANTUS SOLOSTAR [Suspect]
     Active Substance: INSULIN GLARGINE
     Indication: TYPE 2 DIABETES MELLITUS
     Dosage: 35-40 UNITS IN THE AFTERNOON/60 UNITS AT NIGHT,BID
     Route: 058
     Dates: start: 2011
  2. JANUVIA [Concomitant]
     Active Substance: SITAGLIPTIN PHOSPHATE
     Dosage: UNK
     Route: 065
  3. CHROMIUM PICOLINATE [Concomitant]
     Active Substance: CHROMIUM PICOLINATE
     Dosage: UNK
     Route: 065
  4. METFORMIN [Concomitant]
     Active Substance: METFORMIN HYDROCHLORIDE
     Dosage: UNKNOWN
     Route: 065

REACTIONS (4)
  - Expired product administered [Unknown]
  - Inappropriate schedule of product administration [Unknown]
  - Hypoglycaemia [Recovered/Resolved]
  - Blood glucose increased [Recovered/Resolved]
